FAERS Safety Report 11850191 (Version 1)
Quarter: 2015Q4

REPORT INFORMATION
  Report Type: Spontaneous
  Country: US (occurrence: US)
  Receive Date: 20151218
  Receipt Date: 20151218
  Transmission Date: 20160305
  Serious: No
  Sender: FDA-Public Use
  Company Number: US-JNJFOC-20151202890

PATIENT
  Age: 40 Year
  Sex: Female
  Weight: 84.82 kg

DRUGS (1)
  1. TYLENOL COLD SORE THROAT EXTRA STRENGTH [Suspect]
     Active Substance: ACETAMINOPHEN
     Indication: OROPHARYNGEAL PAIN
     Dosage: 1-2 TEASPOON TO 1-2 TABLESPOONS, 3-4X/DAY
     Route: 048
     Dates: start: 20151129

REACTIONS (3)
  - Incorrect dose administered [Unknown]
  - Therapeutic response decreased [Unknown]
  - Product quality issue [None]
